FAERS Safety Report 8962164 (Version 1)
Quarter: 2012Q4

REPORT INFORMATION
  Report Type: 
  Country: US (occurrence: US)
  Receive Date: 20121212
  Receipt Date: 20121212
  Transmission Date: 20130627
  Serious: No
  Sender: FDA-Public Use
  Company Number: US-PFIZER INC-2012311774

PATIENT
  Age: 65 Year
  Sex: Female
  Weight: 132 kg

DRUGS (2)
  1. ALPRAZOLAM [Suspect]
     Indication: PANIC ATTACKS
     Dosage: 1 mg, 4x/day
     Dates: start: 2008
  2. ALPRAZOLAM [Suspect]
     Dosage: UNK
     Dates: start: 201212

REACTIONS (2)
  - Drug dispensing error [Unknown]
  - Disturbance in attention [Unknown]
